FAERS Safety Report 7032908-5 (Version None)
Quarter: 2010Q4

REPORT INFORMATION
  Report Type: 
  Country: None (occurrence: None)
  Receive Date: 20101007
  Receipt Date: 20100930
  Transmission Date: 20110411
  Serious: Yes (Hospitalization)
  Sender: FDA-Public Use
  Company Number: US-JNJFOC-20100802349

PATIENT
  Sex: Female
  Weight: 90.72 kg

DRUGS (24)
  1. SANDOZ FENTANYL TRANSDERMAL SYSTEM [Suspect]
     Indication: FIBROMYALGIA
     Dosage: NDC-0781-7113-55
     Route: 062
  2. SANDOZ FENTANYL TRANSDERMAL SYSTEM [Suspect]
     Indication: OSTEOARTHRITIS
     Dosage: NDC-0781-7113-55
     Route: 062
  3. SANDOZ FENTANYL TRANSDERMAL SYSTEM [Suspect]
     Route: 062
  4. SANDOZ FENTANYL TRANSDERMAL SYSTEM [Suspect]
     Route: 062
  5. SANDOZ FENTANYL TRANSDERMAL SYSTEM [Suspect]
     Route: 062
  6. SANDOZ FENTANYL TRANSDERMAL SYSTEM [Suspect]
     Route: 062
  7. PERCOCET [Suspect]
     Indication: BREAKTHROUGH PAIN
     Route: 048
  8. XANAX [Concomitant]
     Indication: ANXIETY
     Route: 065
  9. XANAX [Concomitant]
     Indication: DEPRESSION
     Route: 065
  10. PHENERGAN [Concomitant]
     Indication: NAUSEA
     Route: 048
  11. CYMBALTA [Concomitant]
     Indication: DEPRESSION
     Route: 048
  12. FLEXERIL [Concomitant]
     Indication: MUSCLE DISORDER
     Route: 048
  13. LUNESTA [Concomitant]
     Indication: SLEEP DISORDER
     Route: 048
  14. CELEBREX [Concomitant]
     Indication: ARTHRALGIA
     Route: 048
  15. PRILOSEC [Concomitant]
     Indication: GASTRIC DISORDER
     Route: 048
  16. POTASSIUM CHLORIDE [Concomitant]
     Route: 048
  17. RESTASIS [Concomitant]
     Indication: DRY EYE
     Route: 065
  18. XOPENEX [Concomitant]
     Indication: BRONCHITIS
     Route: 055
  19. LIDODERM [Concomitant]
     Indication: PAIN
     Route: 062
  20. UNKNOWN MEDICATION [Concomitant]
     Indication: BLOOD CHOLESTEROL INCREASED
     Route: 065
  21. TRIAMTERENE [Concomitant]
     Indication: HYPERTENSION
     Route: 065
  22. NASONEX [Concomitant]
     Indication: MULTIPLE ALLERGIES
     Route: 065
  23. MAXALT-MLT [Concomitant]
     Indication: MIGRAINE
     Route: 048
  24. LORTAB [Concomitant]
     Indication: BREAKTHROUGH PAIN
     Route: 065

REACTIONS (5)
  - ABDOMINAL DISCOMFORT [None]
  - FEELING ABNORMAL [None]
  - GLUCOSE TOLERANCE IMPAIRED [None]
  - OSTEOARTHRITIS [None]
  - THERAPEUTIC RESPONSE DECREASED [None]
